FAERS Safety Report 23713913 (Version 1)
Quarter: 2024Q2

REPORT INFORMATION
  Report Type: Spontaneous
  Country: CN (occurrence: CN)
  Receive Date: 20240405
  Receipt Date: 20240405
  Transmission Date: 20240716
  Serious: Yes (Other)
  Sender: FDA-Public Use
  Company Number: CN-KYOWAKIRIN-2024KK007659

PATIENT

DRUGS (1)
  1. TOREMIFENE [Suspect]
     Active Substance: TOREMIFENE
     Indication: Breast cancer
     Dosage: 60 MG, QD ((60 MG,1 IN 1 D))
     Route: 048
     Dates: start: 20230101, end: 20240319

REACTIONS (4)
  - Eye discharge [Recovering/Resolving]
  - Vision blurred [Not Recovered/Not Resolved]
  - Cataract [Unknown]
  - Diplopia [Unknown]

NARRATIVE: CASE EVENT DATE: 20230404
